FAERS Safety Report 8536255-1 (Version None)
Quarter: 2012Q3

REPORT INFORMATION
  Report Type: 
  Country: None (occurrence: None)
  Receive Date: 20120725
  Receipt Date: 20120719
  Transmission Date: 20120928
  Serious: Yes (Other)
  Sender: FDA-Public Use
  Company Number: JP-PFIZER INC-2012175360

PATIENT
  Sex: Male

DRUGS (1)
  1. LYRICA [Suspect]
     Route: 048

REACTIONS (1)
  - RETINAL HAEMORRHAGE [None]
